FAERS Safety Report 6506522-1 (Version None)
Quarter: 2009Q4

REPORT INFORMATION
  Report Type: 
  Country: None (occurrence: None)
  Receive Date: 20091221
  Receipt Date: 20091214
  Transmission Date: 20100525
  Serious: Yes (Other)
  Sender: FDA-Public Use
  Company Number: JP-BAYER-200915070BYL

PATIENT
  Age: 82 Year
  Sex: Male

DRUGS (6)
  1. AVELOX [Suspect]
     Indication: PNEUMONIA
     Dosage: UNIT DOSE: 400 MG
     Route: 048
     Dates: start: 20091127, end: 20091130
  2. INTEBAN [Suspect]
     Indication: PNEUMONIA
     Route: 054
     Dates: start: 20091127
  3. DAONIL [Concomitant]
     Route: 048
  4. ARICEPT [Concomitant]
     Route: 048
  5. PURSENNID [Concomitant]
     Route: 048
  6. METHYCOBAL [Concomitant]
     Route: 048

REACTIONS (2)
  - MELAENA [None]
  - RASH [None]
